FAERS Safety Report 23749987 (Version 2)
Quarter: 2025Q1

REPORT INFORMATION
  Report Type: Spontaneous
  Country: BR (occurrence: BR)
  Receive Date: 20240417
  Receipt Date: 20250218
  Transmission Date: 20250409
  Serious: Yes (Hospitalization, Other)
  Sender: CELLTRION
  Company Number: BR-CELLTRION INC.-2024BR008852

PATIENT

DRUGS (2)
  1. INFLIXIMAB [Suspect]
     Active Substance: INFLIXIMAB
     Indication: Crohn^s disease
     Route: 042
     Dates: start: 20230519
  2. USTEKINUMAB [Suspect]
     Active Substance: USTEKINUMAB
     Indication: Product used for unknown indication

REACTIONS (4)
  - Crohn^s disease [Recovered/Resolved]
  - Drug level decreased [Unknown]
  - Loss of therapeutic response [Not Recovered/Not Resolved]
  - Drug tolerance increased [Not Recovered/Not Resolved]

NARRATIVE: CASE EVENT DATE: 20231001
